FAERS Safety Report 5717328-5 (Version None)
Quarter: 2008Q2

REPORT INFORMATION
  Report Type: 
  Country: None (occurrence: None)
  Receive Date: 20080424
  Receipt Date: 20080424
  Transmission Date: 20081010
  Serious: Yes (Other)
  Sender: FDA-Public Use
  Company Number: None

PATIENT
  Age: 50 Year
  Sex: Female
  Weight: 84.8226 kg

DRUGS (1)
  1. PHENYTOIN SODIUM 100 MG MAYAN PHARMACEUTICALS [Suspect]
     Indication: CONVULSION
     Dosage: 400 MG QD PO
     Route: 048
     Dates: start: 20080312, end: 20080410

REACTIONS (8)
  - BALANCE DISORDER [None]
  - CONVULSION [None]
  - DRUG TOXICITY [None]
  - FALL [None]
  - MEMORY IMPAIRMENT [None]
  - PHARMACEUTICAL PRODUCT COMPLAINT [None]
  - THERAPEUTIC RESPONSE UNEXPECTED WITH DRUG SUBSTITUTION [None]
  - TREMOR [None]
